FAERS Safety Report 16282342 (Version 3)
Quarter: 2020Q2

REPORT INFORMATION
  Report Type: Report from Study
  Country: GB (occurrence: GB)
  Receive Date: 20190507
  Receipt Date: 20200402
  Transmission Date: 20200713
  Serious: Yes (Hospitalization, Other)
  Sender: FDA-Public Use
  Company Number: PHHY2019GB092179

PATIENT
  Age: 70 Year
  Sex: Female

DRUGS (3)
  1. KISQALI [Suspect]
     Active Substance: RIBOCICLIB
     Indication: BREAST CANCER METASTATIC
     Dosage: 600 MG, QD
     Route: 048
     Dates: start: 20190403, end: 20190415
  2. KISQALI [Suspect]
     Active Substance: RIBOCICLIB
     Dosage: 400 OT, UNK
     Route: 048
     Dates: start: 20190501, end: 20190529
  3. DALTEPARIN [Concomitant]
     Active Substance: DALTEPARIN
     Indication: PROPHYLAXIS
     Dosage: UNK
     Route: 065
     Dates: start: 20190415, end: 20190415

REACTIONS (9)
  - Stomatitis [Recovered/Resolved]
  - White blood cell count decreased [Unknown]
  - Hot flush [Not Recovered/Not Resolved]
  - Neutrophil count decreased [Unknown]
  - Neutropenia [Recovered/Resolved]
  - Constipation [Recovered/Resolved]
  - Diarrhoea [Recovered/Resolved]
  - Nausea [Recovered/Resolved]
  - Alanine aminotransferase increased [Recovered/Resolved]

NARRATIVE: CASE EVENT DATE: 20190403
